FAERS Safety Report 21093679 (Version 1)
Quarter: 2022Q3

REPORT INFORMATION
  Report Type: Spontaneous
  Country: US (occurrence: None)
  Receive Date: 20220715
  Receipt Date: 20220715
  Transmission Date: 20221027
  Serious: Yes (Hospitalization)
  Sender: FDA-Public Use
  Company Number: None

PATIENT
  Age: 81 Year
  Sex: Male

DRUGS (1)
  1. ABIRATERONE [Suspect]
     Active Substance: ABIRATERONE
     Dosage: 1000MG DAILY ORAL?
     Route: 048

REACTIONS (9)
  - Fall [None]
  - Haemorrhage [None]
  - Upper gastrointestinal haemorrhage [None]
  - Vomiting [None]
  - Pulmonary thrombosis [None]
  - Renal disorder [None]
  - Myocardial infarction [None]
  - Cardiac failure congestive [None]
  - Atrial fibrillation [None]

NARRATIVE: CASE EVENT DATE: 20220715
